FAERS Safety Report 21085429 (Version 2)
Quarter: 2022Q3

REPORT INFORMATION
  Report Type: Report from Study
  Country: US (occurrence: US)
  Receive Date: 20220714
  Receipt Date: 20220923
  Transmission Date: 20221026
  Serious: Yes (Other)
  Sender: FDA-Public Use
  Company Number: US-BRISTOL-MYERS SQUIBB COMPANY-2022-068197

PATIENT
  Age: 58 Year
  Sex: Male
  Weight: 83.91 kg

DRUGS (4)
  1. REVLIMID [Suspect]
     Active Substance: LENALIDOMIDE
     Indication: Plasma cell myeloma
     Route: 048
  2. REVLIMID [Suspect]
     Active Substance: LENALIDOMIDE
     Route: 065
  3. REVLIMID [Suspect]
     Active Substance: LENALIDOMIDE
     Dosage: DAILY 21 DAYS THEN 7 DAYS OFF
     Route: 048
  4. FUROSEMIDE [Concomitant]
     Active Substance: FUROSEMIDE
     Indication: Product used for unknown indication
     Route: 065

REACTIONS (9)
  - Fatigue [Unknown]
  - Peripheral swelling [Unknown]
  - Arthropathy [Unknown]
  - Metastasis [Unknown]
  - Rash [Unknown]
  - Insomnia [Unknown]
  - Hepatic enzyme abnormal [Unknown]
  - Malaise [Unknown]
  - Adverse drug reaction [Unknown]
